FAERS Safety Report 6072249-6 (Version None)
Quarter: 2009Q1

REPORT INFORMATION
  Report Type: 
  Country: None (occurrence: None)
  Receive Date: 20090206
  Receipt Date: 20090206
  Transmission Date: 20090719
  Serious: No
  Sender: FDA-Public Use
  Company Number: None

PATIENT
  Sex: Female
  Weight: 49.8957 kg

DRUGS (1)
  1. DEPO-PROVERA [Suspect]
     Indication: CONTRACEPTION
     Dosage: 1 SHOT EVERY 3MONTHS IV
     Route: 042
     Dates: start: 19950815, end: 20090205

REACTIONS (4)
  - ARTHRITIS [None]
  - BONE PAIN [None]
  - FEAR [None]
  - OSTEOPETROSIS [None]
